FAERS Safety Report 15941631 (Version 1)
Quarter: 2019Q1

REPORT INFORMATION
  Report Type: Spontaneous
  Country: US (occurrence: US)
  Receive Date: 20190209
  Receipt Date: 20190209
  Transmission Date: 20190417
  Serious: Yes (Disabling, Other)
  Sender: FDA-Public Use
  Company Number: None

PATIENT
  Age: 53 Year
  Sex: Female
  Weight: 50.4 kg

DRUGS (1)
  1. FASLODEX [Suspect]
     Active Substance: FULVESTRANT
     Indication: BREAST CANCER
     Dosage: ?          QUANTITY:2 INJECTION(S);OTHER FREQUENCY:MONTHLY;?
     Route: 030
     Dates: start: 20190102, end: 20190208

REACTIONS (6)
  - Injection site fibrosis [None]
  - Injection site pain [None]
  - Pain [None]
  - Impaired quality of life [None]
  - Discomfort [None]
  - Wrong technique in product usage process [None]

NARRATIVE: CASE EVENT DATE: 20190102
